FAERS Safety Report 9206066 (Version 1)
Quarter: 2013Q1

REPORT INFORMATION
  Report Type: Spontaneous
  Country: US (occurrence: None)
  Receive Date: 20120731
  Receipt Date: 20120731
  Transmission Date: 20140127
  Serious: Yes (Other)
  Sender: FDA-Public Use
  Company Number: US201205006829

PATIENT
  Age: 62 Year
  Sex: Male
  Weight: 105.7 kg

DRUGS (8)
  1. BYDUREON [Suspect]
     Indication: TYPE 2 DIABETES MELLITUS
     Route: 058
     Dates: start: 201204, end: 20120518
  2. METFORMIN (METFORMIN) [Concomitant]
  3. GLIPIZIDE (GLIPIZIDE) [Concomitant]
  4. ONGLYZA (SAXAGLIPTIN HYDROCHLORIDE) [Concomitant]
  5. CARVEDILOL (CARVEDILOL) [Concomitant]
  6. LISINOPRIL (LISINOPRIL) [Concomitant]
  7. HYDROCHLOROTHIAZIDE (HYDROCHLOROTHIAZIDE) [Concomitant]
  8. LIPITOR (ATORASTATIN CALCIUM) [Concomitant]

REACTIONS (2)
  - Pancreatitis [None]
  - Weight decreased [None]
